FAERS Safety Report 11208147 (Version 3)
Quarter: 2018Q3

REPORT INFORMATION
  Report Type: Report from Study
  Country: DE (occurrence: DE)
  Receive Date: 20150622
  Receipt Date: 20180913
  Transmission Date: 20181010
  Serious: Yes (Hospitalization, Other)
  Sender: FDA-Public Use
  Company Number: DE-BRISTOL-MYERS SQUIBB COMPANY-BMS-2015-038492

PATIENT
  Age: 57 Year
  Sex: Male

DRUGS (4)
  1. TILIDIN [Concomitant]
     Active Substance: NALOXONE HYDROCHLORIDE\TILIDINE HYDROCHLORIDE
     Indication: PRODUCT USED FOR UNKNOWN INDICATION
     Dosage: 50 ?G, BID
     Route: 065
  2. ABATACEPT [Suspect]
     Active Substance: ABATACEPT
     Indication: RHEUMATOID ARTHRITIS
     Dosage: 1 DF, QWK
     Route: 058
     Dates: start: 20141130
  3. L?THYROXIN [Concomitant]
     Active Substance: LEVOTHYROXINE SODIUM
     Indication: HYPOTHYROIDISM
     Route: 065
  4. PREDNISOLONE. [Suspect]
     Active Substance: PREDNISOLONE
     Indication: RHEUMATOID ARTHRITIS
     Dosage: 75 MG, QD
     Route: 048
     Dates: start: 201409

REACTIONS (3)
  - Vertebroplasty [Unknown]
  - Gastrooesophageal reflux disease [Unknown]
  - Osteoporotic fracture [Recovered/Resolved with Sequelae]

NARRATIVE: CASE EVENT DATE: 20150331
